FAERS Safety Report 6204928-1 (Version None)
Quarter: 2009Q2

REPORT INFORMATION
  Report Type: 
  Country: None (occurrence: None)
  Receive Date: 20090526
  Receipt Date: 20090511
  Transmission Date: 20091009
  Serious: Yes (Other)
  Sender: FDA-Public Use
  Company Number: 2009AL003266

PATIENT
  Age: 39 Year
  Sex: Female

DRUGS (2)
  1. BACLOFEN [Suspect]
     Indication: MULTIPLE SCLEROSIS
  2. INTERFERON BETA [Concomitant]

REACTIONS (1)
  - ONYCHOMYCOSIS [None]
